FAERS Safety Report 5652896-3 (Version None)
Quarter: 2008Q1

REPORT INFORMATION
  Report Type: 
  Country: None (occurrence: None)
  Receive Date: 20080306
  Receipt Date: 20080227
  Transmission Date: 20080703
  Serious: Yes (Other)
  Sender: FDA-Public Use
  Company Number: FR-PURDUE-GBR_2008_0003788

PATIENT
  Age: 66 Year
  Sex: Female

DRUGS (3)
  1. OXYNORM CAPSULES 5 MG [Suspect]
     Indication: PAIN
     Dosage: 5 MG, UNK
     Route: 048
  2. OXYCONTIN [Concomitant]
     Indication: PAIN
     Dosage: 40 MG, DAILY
     Route: 065
  3. CORTICOSTEROIDS [Concomitant]
     Indication: ASTHMA
     Dosage: UNK, UNK
     Route: 065

REACTIONS (1)
  - ANGIOEDEMA [None]
